FAERS Safety Report 15677702 (Version 1)
Quarter: 2018Q4

REPORT INFORMATION
  Report Type: Spontaneous
  Country: US (occurrence: US)
  Receive Date: 20181130
  Receipt Date: 20181130
  Transmission Date: 20190205
  Serious: Yes (Hospitalization)
  Sender: FDA-Public Use
  Company Number: US-PFIZER INC-2018444529

PATIENT
  Age: 73 Year
  Sex: Female
  Weight: 48.99 kg

DRUGS (1)
  1. CHAPSTICK CLASSICS ORIGINAL [Suspect]
     Active Substance: PADIMATE O\PETROLATUM
     Indication: LIP DRY
     Dosage: 3 OR 4 TIMES A DAY
     Dates: start: 20181025, end: 20181025

REACTIONS (2)
  - Oral discomfort [Recovered/Resolved]
  - Product use complaint [Unknown]

NARRATIVE: CASE EVENT DATE: 20181025
